FAERS Safety Report 21228742 (Version 2)
Quarter: 2022Q3

REPORT INFORMATION
  Report Type: Spontaneous
  Country: US (occurrence: US)
  Receive Date: 20220818
  Receipt Date: 20220915
  Transmission Date: 20221027
  Serious: No
  Sender: FDA-Public Use
  Company Number: US-PFIZER INC-202201042090

PATIENT
  Age: 14 Year
  Sex: Male
  Weight: 52.62 kg

DRUGS (1)
  1. GENOTROPIN [Suspect]
     Active Substance: SOMATROPIN
     Indication: Short stature
     Dosage: UNK

REACTIONS (2)
  - Device leakage [Unknown]
  - Device difficult to use [Unknown]
